FAERS Safety Report 5247924-3 (Version None)
Quarter: 2007Q1

REPORT INFORMATION
  Report Type: 
  Country: None (occurrence: None)
  Receive Date: 20070226
  Receipt Date: 20070226
  Transmission Date: 20070707
  Serious: Yes (Other)
  Sender: FDA-Public Use
  Company Number: None

PATIENT
  Age: 25 Year
  Sex: Female
  Weight: 56.6996 kg

DRUGS (5)
  1. CHORIONIC GONADOTROPIN [Suspect]
     Indication: IN VITRO FERTILISATION
     Dosage: 10,000 X1 IM
     Route: 030
     Dates: start: 20070128
  2. LUPRON [Concomitant]
  3. MENOPUR [Concomitant]
  4. GONAL-F [Concomitant]
  5. DESOGEN [Concomitant]

REACTIONS (2)
  - BLOOD HUMAN CHORIONIC GONADOTROPIN DECREASED [None]
  - DRUG INEFFECTIVE [None]
